FAERS Safety Report 7602947-1 (Version None)
Quarter: 2011Q3

REPORT INFORMATION
  Report Type: 
  Country: None (occurrence: None)
  Receive Date: 20110712
  Receipt Date: 20110323
  Transmission Date: 20111222
  Serious: No
  Sender: FDA-Public Use
  Company Number: A0919556A

PATIENT
  Age: 87 Year
  Sex: Male

DRUGS (4)
  1. RAMIPRIL [Concomitant]
  2. JALYN [Suspect]
     Indication: NOCTURIA
     Dosage: 1CAP SINGLE DOSE
     Route: 048
     Dates: start: 20110322
  3. LIPITOR [Concomitant]
  4. BENADRYL [Concomitant]

REACTIONS (2)
  - SOMNOLENCE [None]
  - DRUG INEFFECTIVE [None]
